FAERS Safety Report 5771811-5 (Version None)
Quarter: 2008Q2

REPORT INFORMATION
  Report Type: 
  Country: None (occurrence: None)
  Receive Date: 20080613
  Receipt Date: 20080605
  Transmission Date: 20081010
  Serious: Yes (Death)
  Sender: FDA-Public Use
  Company Number: GB-TEVA-172557ISR

PATIENT
  Age: 64 Year
  Sex: Male

DRUGS (3)
  1. ALBUTEROL [Suspect]
  2. CLOZAPINE [Suspect]
     Indication: SCHIZOPHRENIA
     Dates: start: 20040818, end: 20060721
  3. RANITIDINE [Suspect]

REACTIONS (3)
  - CARDIAC ARREST [None]
  - CIRCULATORY COLLAPSE [None]
  - DRUG INTERACTION [None]
